FAERS Safety Report 25450049 (Version 1)
Quarter: 2025Q2

REPORT INFORMATION
  Report Type: Spontaneous
  Country: IT (occurrence: IT)
  Receive Date: 20250618
  Receipt Date: 20250618
  Transmission Date: 20250716
  Serious: Yes (Other)
  Sender: AUROBINDO
  Company Number: IT-BAYER-2025A066541

PATIENT
  Age: 79 Year
  Sex: Female

DRUGS (4)
  1. RIVAROXABAN [Suspect]
     Active Substance: RIVAROXABAN
     Indication: Product used for unknown indication
     Route: 065
  2. XARELTO [Suspect]
     Active Substance: RIVAROXABAN
     Indication: Product used for unknown indication
     Route: 065
  3. XARELTO [Suspect]
     Active Substance: RIVAROXABAN
     Route: 065
  4. Heart [Concomitant]
     Indication: Product used for unknown indication
     Route: 065

REACTIONS (3)
  - Capillaritis [Unknown]
  - Haemorrhoids [Unknown]
  - Abdominal pain [Unknown]
